FAERS Safety Report 16558686 (Version 1)
Quarter: 2019Q3

REPORT INFORMATION
  Report Type: Spontaneous
  Country: CN (occurrence: CN)
  Receive Date: 20190711
  Receipt Date: 20190711
  Transmission Date: 20191004
  Serious: Yes (Death, Life-Threatening, Hospitalization, Other)
  Sender: FDA-Public Use
  Company Number: CN-JNJFOC-20190636526

PATIENT
  Age: 58 Year
  Sex: Female

DRUGS (3)
  1. FENTANYL. [Suspect]
     Active Substance: FENTANYL
     Indication: PAIN
  2. FENTANYL. [Suspect]
     Active Substance: FENTANYL
     Indication: PAIN
  3. FENTANYL. [Suspect]
     Active Substance: FENTANYL
     Indication: CANCER PAIN
     Route: 065

REACTIONS (2)
  - Malaise [Unknown]
  - Toxicity to various agents [Fatal]
